FAERS Safety Report 8438179-7 (Version None)
Quarter: 2012Q2

REPORT INFORMATION
  Report Type: 
  Country: None (occurrence: None)
  Receive Date: 20120614
  Receipt Date: 20120604
  Transmission Date: 20120825
  Serious: Yes (Hospitalization)
  Sender: FDA-Public Use
  Company Number: DE-ABBOTT-12P-062-0942605-05

PATIENT
  Sex: Male
  Weight: 72 kg

DRUGS (14)
  1. HUMIRA [Suspect]
     Route: 058
     Dates: end: 20120228
  2. HUMIRA [Suspect]
     Route: 058
     Dates: start: 20120515
  3. AZATHIOPRINE SODIUM [Concomitant]
     Dates: start: 20111121
  4. HUMIRA [Suspect]
     Route: 058
     Dates: start: 20090427, end: 20090427
  5. HUMIRA [Suspect]
     Indication: CROHN'S DISEASE
     Route: 058
     Dates: start: 20090317
  6. HUMIRA [Suspect]
     Route: 058
  7. NOVALGIN [Concomitant]
     Indication: POLYNEUROPATHY
     Dates: start: 20090901
  8. NOVALGIN [Concomitant]
     Indication: PAIN
  9. TAMSULOSIN HCL [Concomitant]
     Indication: BENIGN PROSTATIC HYPERPLASIA
     Dates: start: 20091101
  10. AZATHIOPRINE SODIUM [Concomitant]
     Indication: CROHN'S DISEASE
     Dates: start: 19980401, end: 20111120
  11. PANTOPRAZOLE [Concomitant]
     Indication: GASTRIC DISORDER
     Dates: start: 20050101
  12. PANTOPRAZOLE [Concomitant]
     Indication: PROPHYLAXIS
  13. MAGNESIUM VERLA [Concomitant]
     Indication: MINERAL SUPPLEMENTATION
     Dates: start: 20090301
  14. AMITRIPTYLINE HCL [Concomitant]
     Indication: ANALGESIC THERAPY
     Dates: start: 20100419

REACTIONS (1)
  - ERYTHEMA NODOSUM [None]
